FAERS Safety Report 9919448 (Version 6)
Quarter: 2014Q2

REPORT INFORMATION
  Report Type: Report from Study
  Country: JP (occurrence: JP)
  Receive Date: 20140224
  Receipt Date: 20140418
  Transmission Date: 20141212
  Serious: Yes (Hospitalization)
  Sender: FDA-Public Use
  Company Number: JP-ASTRAZENECA-2014SE12239

PATIENT
  Age: 30070 Day
  Sex: Male

DRUGS (16)
  1. AZD6140 [Suspect]
     Indication: CORONARY ARTERY DISEASE
     Route: 048
     Dates: start: 20120409, end: 20140217
  2. TANATRIL [Concomitant]
     Indication: HYPERTENSION
     Route: 048
  3. ARTIST [Concomitant]
     Indication: HYPERTENSION
     Route: 048
  4. NIAPRAZINE [Concomitant]
     Indication: RHINITIS
     Route: 048
  5. KERATINAMIN KOWA [Concomitant]
     Indication: XEROSIS
     Route: 061
  6. BORRAGINOL M [Concomitant]
     Indication: HAEMORRHOIDS
     Route: 061
  7. ALLEGRA [Concomitant]
     Indication: RHINITIS
     Route: 048
  8. TAKEPRON [Concomitant]
     Indication: GASTRITIS PROPHYLAXIS
     Route: 048
  9. CONIEL [Concomitant]
     Indication: HYPERTENSION
     Route: 048
  10. RIZE [Concomitant]
     Indication: TINNITUS
     Route: 048
  11. ADETPHOS KOWA [Concomitant]
     Indication: TINNITUS
     Route: 048
  12. HIRUDOID SOFT [Concomitant]
     Indication: XEROSIS
     Route: 061
     Dates: start: 20131213
  13. METHYCOBAL [Concomitant]
     Indication: TINNITUS
     Route: 048
  14. ANTEBATE [Concomitant]
     Indication: XEROSIS
     Dates: start: 20121207, end: 20130331
  15. ANTEBATE [Concomitant]
     Indication: XEROSIS
     Dates: start: 20131213
  16. ASPIRIN [Concomitant]
     Route: 048

REACTIONS (1)
  - Myelofibrosis [Not Recovered/Not Resolved]
